FAERS Safety Report 8058979-5 (Version None)
Quarter: 2012Q1

REPORT INFORMATION
  Report Type: 
  Country: None (occurrence: None)
  Receive Date: 20120112
  Receipt Date: 20120109
  Transmission Date: 20120608
  Serious: Yes (Disabling)
  Sender: FDA-Public Use
  Company Number: DK-GDP-12412766

PATIENT
  Sex: Male
  Weight: 75 kg

DRUGS (1)
  1. ADAPALENE [Suspect]
     Indication: ACNE
     Dosage: 1 DF QD OPHTHALMIC
     Route: 047
     Dates: start: 20111001

REACTIONS (2)
  - CORNEAL ABRASION [None]
  - WRONG TECHNIQUE IN DRUG USAGE PROCESS [None]
